FAERS Safety Report 6493285-1 (Version None)
Quarter: 2009Q4

REPORT INFORMATION
  Report Type: 
  Country: None (occurrence: None)
  Receive Date: 20091209
  Receipt Date: 20091126
  Transmission Date: 20100525
  Serious: Yes (Hospitalization)
  Sender: FDA-Public Use
  Company Number: 2009029404

PATIENT
  Age: 51 Year
  Sex: Female
  Weight: 44 kg

DRUGS (2)
  1. TREANDA [Suspect]
     Indication: BREAST CANCER
     Dosage: 12.7143 MG (89 MG, 1  IN 1 WK), INTRAVENOUS
     Route: 042
     Dates: start: 20090723, end: 20091119
  2. PACLITAXEL [Suspect]
     Indication: BREAST CANCER
     Dosage: 16.8571 MG (118 MG, 1 IN 1 WK), INTRAVENOUS
     Route: 042
     Dates: start: 20090723, end: 20091119

REACTIONS (3)
  - DEHYDRATION [None]
  - GENERAL PHYSICAL HEALTH DETERIORATION [None]
  - NAUSEA [None]
